FAERS Safety Report 6842237-8 (Version None)
Quarter: 2010Q3

REPORT INFORMATION
  Report Type: 
  Country: None (occurrence: None)
  Receive Date: 20100709
  Receipt Date: 20100628
  Transmission Date: 20110219
  Serious: Yes (Other)
  Sender: FDA-Public Use
  Company Number: 2010SP036735

PATIENT
  Age: 21 Year
  Sex: Female
  Weight: 40.8237 kg

DRUGS (1)
  1. IMPLANON [Suspect]
     Indication: CONTRACEPTION
     Dosage: 68 MG;
     Dates: start: 20100506

REACTIONS (7)
  - BREAST TENDERNESS [None]
  - CONTUSION [None]
  - DIZZINESS [None]
  - HAEMORRHAGE [None]
  - HOT FLUSH [None]
  - LOSS OF CONSCIOUSNESS [None]
  - SOMNOLENCE [None]
